FAERS Safety Report 4484465-5 (Version None)
Quarter: 2004Q3

REPORT INFORMATION
  Report Type: 
  Country: None (occurrence: None)
  Receive Date: 20040921
  Receipt Date: 20031208
  Transmission Date: 20050211
  Serious: Yes (Hospitalization, Other)
  Sender: FDA-Public Use
  Company Number: 163-20785-04010351

PATIENT
  Age: 64 Year
  Sex: Male

DRUGS (7)
  1. THALOMID [Suspect]
     Indication: MULTIPLE MYELOMA
     Dosage: DAILY, ORAL
     Route: 048
     Dates: start: 20030702
  2. MELPHALAN (MELPHALAN) (UNKNOWN) [Suspect]
     Indication: MULTIPLE MYELOMA
     Dosage: 400 MG, INTRAVENOUS
     Route: 042
     Dates: start: 20030804
  3. DEXAMETHASONE [Concomitant]
  4. CISPLATIN [Concomitant]
  5. ADRIAMYCIN PFS [Concomitant]
  6. CYCLOPHOSPHAMIDE [Concomitant]
  7. ETOPOSIDE [Concomitant]

REACTIONS (6)
  - ABDOMINAL PAIN [None]
  - DIARRHOEA [None]
  - FEBRILE NEUTROPENIA [None]
  - HAEMATOCRIT DECREASED [None]
  - HAEMOGLOBIN DECREASED [None]
  - PLATELET COUNT DECREASED [None]
